FAERS Safety Report 16655072 (Version 1)
Quarter: 2019Q3

REPORT INFORMATION
  Report Type: Spontaneous
  Country: US (occurrence: US)
  Receive Date: 20190801
  Receipt Date: 20190801
  Transmission Date: 20191004
  Serious: Yes (Hospitalization, Other)
  Sender: FDA-Public Use
  Company Number: US-DRREDDYS-USA/USA/19/0112658

PATIENT
  Age: 51 Year
  Sex: Male

DRUGS (10)
  1. CLADRIBINE. [Suspect]
     Active Substance: CLADRIBINE
     Indication: ACUTE MYELOID LEUKAEMIA
     Dosage: DAYS 1 THROUGH 5
     Route: 042
  2. DECITABINE. [Suspect]
     Active Substance: DECITABINE
     Indication: ACUTE MYELOID LEUKAEMIA
     Dosage: EVERY 8 H ON DAYS 1 THROUGH 3 IN ADDITION
     Route: 042
  3. MIDOSTAURIN [Suspect]
     Active Substance: MIDOSTAURIN
     Dosage: DAYS 1 THROUGH 5
     Route: 042
  4. CYTARABINE. [Suspect]
     Active Substance: CYTARABINE
     Dosage: DAYS 1 THROUGH 5
     Route: 042
  5. CYTARABINE. [Suspect]
     Active Substance: CYTARABINE
     Indication: ACUTE MYELOID LEUKAEMIA
     Dosage: DAYS 1 THROUGH 7
     Route: 042
  6. CLADRIBINE. [Suspect]
     Active Substance: CLADRIBINE
     Dosage: 2 MONTHS LATER
     Route: 048
  7. MIDOSTAURIN [Suspect]
     Active Substance: MIDOSTAURIN
     Indication: ACUTE MYELOID LEUKAEMIA
     Dosage: ON DAYS 8 THROUGH 21, MIDOSTAURIN THERAPY WAS HELD DUE TO AFOREMENTIONED COMPLICATIONS AND HE DID NO
     Route: 048
  8. CLADRIBINE. [Suspect]
     Active Substance: CLADRIBINE
     Dosage: DAYS 8 THROUGH 28
     Route: 048
  9. DAUNORUBICIN [Suspect]
     Active Substance: DAUNORUBICIN
     Indication: ACUTE MYELOID LEUKAEMIA
     Dosage: DAYS 1 THROUGH 3
     Route: 042
  10. DAUNORUBICIN [Suspect]
     Active Substance: DAUNORUBICIN
     Dosage: DAYS 1 THROUGH 2
     Route: 042

REACTIONS (15)
  - Leukaemia recurrent [Unknown]
  - Bacteraemia [Unknown]
  - Epistaxis [Unknown]
  - Dyspnoea [Unknown]
  - Respiratory failure [Unknown]
  - Febrile neutropenia [Unknown]
  - Hypotension [Unknown]
  - Endocarditis [Unknown]
  - Pneumonia respiratory syncytial viral [Unknown]
  - Oedema peripheral [Unknown]
  - Clostridium difficile infection [Unknown]
  - Gastrointestinal haemorrhage [Unknown]
  - Acute myocardial infarction [Unknown]
  - Muscular weakness [Unknown]
  - Duodenal ulcer [Unknown]
